FAERS Safety Report 16719294 (Version 1)
Quarter: 2019Q3

REPORT INFORMATION
  Report Type: Spontaneous
  Country: JP (occurrence: JP)
  Receive Date: 20190820
  Receipt Date: 20190820
  Transmission Date: 20191005
  Serious: Yes (Hospitalization, Other)
  Sender: FDA-Public Use
  Company Number: JP-IPCA LABORATORIES LIMITED-IPC-2019-JP-001173

PATIENT

DRUGS (3)
  1. WARFARIN SODIUM. [Interacting]
     Active Substance: WARFARIN SODIUM
     Dosage: 1 MG, QD
     Route: 065
  2. WARFARIN SODIUM. [Suspect]
     Active Substance: WARFARIN SODIUM
     Indication: PRODUCT USED FOR UNKNOWN INDICATION
     Dosage: 2.5 MG, QD
     Route: 065
  3. FLUTAMIDE. [Interacting]
     Active Substance: FLUTAMIDE
     Indication: PROSTATE CANCER
     Dosage: 375 MG, QD
     Route: 065

REACTIONS (9)
  - International normalised ratio increased [Recovered/Resolved]
  - Gingival bleeding [Recovered/Resolved]
  - Urinary bladder haemorrhage [Recovered/Resolved]
  - Abdominal wall haematoma [Recovered/Resolved]
  - Drug interaction [Unknown]
  - Haematuria [Recovered/Resolved]
  - Ear haemorrhage [Recovered/Resolved]
  - Haematoma muscle [Recovered/Resolved]
  - Haemorrhage subcutaneous [Recovered/Resolved]
